FAERS Safety Report 8190909-8 (Version None)
Quarter: 2012Q1

REPORT INFORMATION
  Report Type: 
  Country: None (occurrence: None)
  Receive Date: 20120221
  Receipt Date: 20111107
  Transmission Date: 20120608
  Serious: No
  Sender: FDA-Public Use
  Company Number: 1000025259

PATIENT
  Age: 81 Year
  Sex: Female

DRUGS (6)
  1. VIIBRYD [Suspect]
     Indication: DEPRESSION
     Dosage: 10 MG (10 MG, 1 IN 1 D), ORAL
     Route: 048
     Dates: start: 20111105
  2. ASPIRIN [Concomitant]
  3. METOPROLOL ER (METOPROLOL) [Concomitant]
  4. PREVACID [Concomitant]
  5. SYNTHROID [Concomitant]
  6. ATIVAN (LORAZEPRAM) [Concomitant]

REACTIONS (3)
  - INSOMNIA [None]
  - DIARRHOEA [None]
  - FEELING JITTERY [None]
